FAERS Safety Report 6328106-0 (Version None)
Quarter: 2009Q3

REPORT INFORMATION
  Report Type: 
  Country: None (occurrence: None)
  Receive Date: 20090825
  Receipt Date: 20081015
  Transmission Date: 20100115
  Serious: No
  Sender: FDA-Public Use
  Company Number: US-ABBOTT-08P-163-0482076-00

PATIENT
  Sex: Male
  Weight: 83.99 kg

DRUGS (3)
  1. SYNTHROID [Suspect]
     Indication: HYPOTHYROIDISM
     Route: 048
     Dates: end: 20080805
  2. SYNTHROID [Suspect]
     Route: 048
     Dates: start: 20080806, end: 20081015
  3. SYNTHROID [Suspect]
     Route: 048
     Dates: start: 20081016

REACTIONS (3)
  - BLOOD THYROID STIMULATING HORMONE INCREASED [None]
  - FATIGUE [None]
  - INSOMNIA [None]
